FAERS Safety Report 25162517 (Version 1)
Quarter: 2025Q2

REPORT INFORMATION
  Report Type: Spontaneous
  Country: US (occurrence: US)
  Receive Date: 20250404
  Receipt Date: 20250404
  Transmission Date: 20250717
  Serious: Yes (Hospitalization, Other)
  Sender: TIME CAPS
  Company Number: US-Time-Cap Labs, Inc.-2174294

PATIENT
  Sex: Male

DRUGS (1)
  1. MAGNESIUM CHLORIDE [Suspect]
     Active Substance: MAGNESIUM CHLORIDE
     Indication: Product used for unknown indication
     Dates: start: 20250220

REACTIONS (2)
  - Choking [Unknown]
  - Dyspepsia [Unknown]
